FAERS Safety Report 9904610 (Version 6)
Quarter: 2014Q1

REPORT INFORMATION
  Report Type: Report from Study
  Country: CH (occurrence: CH)
  Receive Date: 20140218
  Receipt Date: 20140313
  Transmission Date: 20141002
  Serious: Yes (Hospitalization)
  Sender: FDA-Public Use
  Company Number: CH-ROCHE-1345522

PATIENT
  Age: 52 Year
  Sex: Male
  Weight: 82 kg

DRUGS (5)
  1. OBINUTUZUMAB [Suspect]
     Indication: CHRONIC LYMPHOCYTIC LEUKAEMIA
     Dosage: DATE OF LAST DOSE PRIOR TO SAE: 03/FEB/2014
     Route: 042
     Dates: start: 20140203, end: 20140205
  2. PHENOBARBITAL [Concomitant]
     Route: 065
     Dates: start: 20140204
  3. PARACETAMOL [Concomitant]
     Route: 065
     Dates: start: 20140204
  4. BACTRIM FORTE [Concomitant]
     Route: 065
     Dates: start: 20140128
  5. VALTREX [Concomitant]
     Route: 065
     Dates: start: 20140128

REACTIONS (2)
  - Hepatic enzyme increased [Recovered/Resolved]
  - Tumour lysis syndrome [Recovered/Resolved]
